FAERS Safety Report 5684097-7 (Version None)
Quarter: 2008Q1

REPORT INFORMATION
  Report Type: 
  Country: None (occurrence: None)
  Receive Date: 20080328
  Receipt Date: 20080317
  Transmission Date: 20080703
  Serious: Yes (Other)
  Sender: FDA-Public Use
  Company Number: ES-AVENTIS-200812622GDDC

PATIENT
  Age: 31 Year
  Sex: Female

DRUGS (6)
  1. OFLOXACIN [Suspect]
     Dosage: DOSE: UNK
  2. OFLOXACIN [Suspect]
     Indication: ABDOMINAL PAIN
     Dosage: DOSE: UNK
  3. METRONIDAZOLE HCL [Suspect]
     Dosage: DOSE: UNK
  4. METRONIDAZOLE HCL [Suspect]
     Indication: ABDOMINAL PAIN
     Dosage: DOSE: UNK
  5. CIPROFLOXACIN [Suspect]
     Dosage: DOSE: UNK
  6. CIPROFLOXACIN [Suspect]
     Indication: ABDOMINAL PAIN
     Dosage: DOSE: UNK

REACTIONS (1)
  - CLOSTRIDIUM DIFFICILE COLITIS [None]
